FAERS Safety Report 24847531 (Version 1)
Quarter: 2025Q1

REPORT INFORMATION
  Report Type: Spontaneous
  Country: US (occurrence: US)
  Receive Date: 20250116
  Receipt Date: 20250116
  Transmission Date: 20250408
  Serious: No
  Sender: Steriscience PTE
  Company Number: US-STERISCIENCE B.V.-2024-ST-002015

PATIENT
  Age: 61 Year
  Sex: Female

DRUGS (1)
  1. MYCOPHENOLATE MOFETIL [Suspect]
     Active Substance: MYCOPHENOLATE MOFETIL
     Indication: Henoch-Schonlein purpura
     Route: 065
     Dates: start: 2023

REACTIONS (3)
  - Proteinuria [Unknown]
  - Anaemia [Unknown]
  - Drug ineffective for unapproved indication [Unknown]
